FAERS Safety Report 8515628-7 (Version None)
Quarter: 2012Q3

REPORT INFORMATION
  Report Type: 
  Country: None (occurrence: None)
  Receive Date: 20120717
  Receipt Date: 20120712
  Transmission Date: 20120928
  Serious: Yes (Other)
  Sender: FDA-Public Use
  Company Number: PHEH2012US013771

PATIENT
  Sex: Female

DRUGS (1)
  1. ESTRADERM [Suspect]
     Dosage: UNK UKN, UNK

REACTIONS (3)
  - HEADACHE [None]
  - SCOLIOSIS [None]
  - ANXIETY [None]
